FAERS Safety Report 20092739 (Version 3)
Quarter: 2021Q4

REPORT INFORMATION
  Report Type: Report from Study
  Country: AU (occurrence: AU)
  Receive Date: 20211120
  Receipt Date: 20211224
  Transmission Date: 20220303
  Serious: Yes (Hospitalization)
  Sender: FDA-Public Use
  Company Number: AU-ABBVIE-21K-008-4167339-00

PATIENT
  Age: 72 Year
  Sex: Female
  Weight: 48 kg

DRUGS (8)
  1. CARBIDOPA\LEVODOPA [Suspect]
     Active Substance: CARBIDOPA\LEVODOPA
     Indication: Product used for unknown indication
     Route: 050
     Dates: start: 2018
  2. CARBIDOPA\LEVODOPA [Suspect]
     Active Substance: CARBIDOPA\LEVODOPA
     Dosage: CONTINUOUS DOSE 2 TO 2.4ML PER HOUR?APPROXIMATELY 14 H A DAY
     Route: 050
     Dates: start: 20191105
  3. CARBIDOPA\LEVODOPA [Suspect]
     Active Substance: CARBIDOPA\LEVODOPA
     Dosage: EXTRA DOSE 0.8ML Q 30 MINS LOCKOUT
     Route: 050
  4. AKINETON [Concomitant]
     Active Substance: BIPERIDEN HYDROCHLORIDE
     Indication: Parkinson^s disease
     Route: 048
  5. AMANTADINE [Concomitant]
     Active Substance: AMANTADINE
     Indication: Parkinson^s disease
     Dosage: IN THE MORNING
     Route: 048
  6. ROTIGOTINE [Concomitant]
     Active Substance: ROTIGOTINE
     Indication: Parkinson^s disease
  7. BENSERAZIDE HYDROCHLORIDE\LEVODOPA [Concomitant]
     Active Substance: BENSERAZIDE HYDROCHLORIDE\LEVODOPA
     Indication: Parkinson^s disease
     Dosage: AT NIGHT
     Route: 048
  8. FLUDROCORTISONE [Concomitant]
     Active Substance: FLUDROCORTISONE
     Indication: Orthostatic hypotension
     Route: 048

REACTIONS (5)
  - Device dislocation [Recovered/Resolved]
  - Erythema [Unknown]
  - Stoma site reaction [Recovered/Resolved]
  - Discharge [Recovered/Resolved]
  - Excessive granulation tissue [Recovered/Resolved]

NARRATIVE: CASE EVENT DATE: 20201101
